FAERS Safety Report 7534047-3 (Version None)
Quarter: 2011Q2

REPORT INFORMATION
  Report Type: 
  Country: None (occurrence: None)
  Receive Date: 20110608
  Receipt Date: 20060929
  Transmission Date: 20111010
  Serious: Yes (Death, Other)
  Sender: FDA-Public Use
  Company Number: PHNR2006AU00585

PATIENT
  Sex: Male

DRUGS (2)
  1. CLOZAPINE [Suspect]
     Dosage: 1MONTH SUPPLY AT ONCE
     Route: 048
     Dates: start: 20060301
  2. CLOZAPINE [Suspect]
     Dosage: 12.5-300MG DAILY
     Route: 048
     Dates: start: 20030930

REACTIONS (3)
  - DEATH [None]
  - INTENTIONAL OVERDOSE [None]
  - DEPRESSED MOOD [None]
